FAERS Safety Report 16394195 (Version 1)
Quarter: 2019Q2

REPORT INFORMATION
  Report Type: Spontaneous
  Country: FR (occurrence: FR)
  Receive Date: 20190605
  Receipt Date: 20190605
  Transmission Date: 20190711
  Serious: Yes (Hospitalization, Other)
  Sender: FDA-Public Use
  Company Number: FR-MYLANLABS-2019M1053322

PATIENT
  Age: 89 Year
  Sex: Female
  Weight: 92 kg

DRUGS (14)
  1. FONDAPARINUX [Suspect]
     Active Substance: FONDAPARINUX
     Indication: THROMBOPHLEBITIS SUPERFICIAL
     Dosage: 7.5 MILLIGRAM, QD
     Route: 058
     Dates: start: 20190411, end: 20190421
  2. CEFTRIAXONE SODIUM. [Concomitant]
     Active Substance: CEFTRIAXONE SODIUM
     Dosage: UNK
     Dates: start: 20190424, end: 20190501
  3. RESIKALI [Concomitant]
     Active Substance: CALCIUM POLYSTYRENE SULFONATE
     Dosage: UNK
     Dates: start: 20190421, end: 20190421
  4. LACRIFLUID [Concomitant]
     Active Substance: CARBOMER
  5. SPIRIVA COMBI [Concomitant]
     Active Substance: TIOTROPIUM BROMIDE
  6. ESIDREX [Concomitant]
     Active Substance: HYDROCHLOROTHIAZIDE
  7. DOLIPRANE [Concomitant]
     Active Substance: ACETAMINOPHEN
  8. EFFEXOR XR [Interacting]
     Active Substance: VENLAFAXINE HYDROCHLORIDE
     Indication: PRODUCT USED FOR UNKNOWN INDICATION
     Dosage: 7.5 MILLIGRAM, QD
     Route: 048
  9. NEFOPAM HYDROCHLORIDE [Concomitant]
     Active Substance: NEFOPAM HYDROCHLORIDE
  10. TRANSULOSE [Concomitant]
     Active Substance: LACTULOSE\MINERAL OIL\PARAFFIN
  11. PANTOPRAZOLE [Concomitant]
     Active Substance: PANTOPRAZOLE
  12. AMOXICILLINE SODIUM [Concomitant]
     Active Substance: AMOXICILLIN SODIUM
     Dosage: UNK
     Dates: start: 20190422, end: 20190423
  13. METRONIDAZOLE. [Concomitant]
     Active Substance: METRONIDAZOLE
     Dosage: UNK
     Dates: start: 20190424, end: 20190501
  14. SERETIDE [Concomitant]
     Active Substance: FLUTICASONE PROPIONATE\SALMETEROL XINAFOATE

REACTIONS (3)
  - Retroperitoneal haematoma [Not Recovered/Not Resolved]
  - Incorrect dose administered [Unknown]
  - Drug interaction [Unknown]

NARRATIVE: CASE EVENT DATE: 20190411
